FAERS Safety Report 21915997 (Version 1)
Quarter: 2023Q1

REPORT INFORMATION
  Report Type: Spontaneous
  Country: US (occurrence: None)
  Receive Date: 20230125
  Receipt Date: 20230125
  Transmission Date: 20230417
  Serious: Yes (Other)
  Sender: FDA-Public Use
  Company Number: None

PATIENT
  Sex: Female
  Weight: 40.5 kg

DRUGS (4)
  1. VYVANSE [Suspect]
     Active Substance: LISDEXAMFETAMINE DIMESYLATE
     Dosage: OTHER QUANTITY : 14 CAPSULE(S);?
     Route: 048
     Dates: start: 20221229
  2. TRAZODONE [Concomitant]
     Active Substance: TRAZODONE HYDROCHLORIDE
  3. NAPROXEN [Concomitant]
     Active Substance: NAPROXEN
  4. CLARITIN [Concomitant]
     Active Substance: LORATADINE

REACTIONS (5)
  - Therapeutic product effect decreased [None]
  - Loss of therapeutic response [None]
  - Adverse drug reaction [None]
  - Depression [None]
  - Product quality issue [None]
